FAERS Safety Report 4283479-8 (Version None)
Quarter: 2004Q1

REPORT INFORMATION
  Report Type: 
  Country: None (occurrence: None)
  Receive Date: 20040115
  Receipt Date: 20031030
  Transmission Date: 20041129
  Serious: Yes (Death)
  Sender: FDA-Public Use
  Company Number: US-JNJFOC-20031006663

PATIENT
  Age: 64 Year
  Sex: Female

DRUGS (1)
  1. DOXIL [Suspect]
     Indication: HODGKIN'S DISEASE
     Dosage: 36 MG, INTRAVENOUS
     Route: 042
     Dates: start: 20030326, end: 20030515

REACTIONS (1)
  - MALIGNANT NEOPLASM PROGRESSION [None]
